FAERS Safety Report 10626496 (Version 1)
Quarter: 2014Q4

REPORT INFORMATION
  Report Type: Spontaneous
  Country: DE (occurrence: DE)
  Receive Date: 20141204
  Receipt Date: 20141204
  Transmission Date: 20150529
  Serious: Yes (Congenital Anomaly, Other)
  Sender: FDA-Public Use
  Company Number: DE-PFIZER INC-2014327246

PATIENT
  Age: 1 Day
  Sex: Male
  Weight: 3.35 kg

DRUGS (13)
  1. SEROQUEL [Suspect]
     Active Substance: QUETIAPINE FUMARATE
     Indication: BIPOLAR DISORDER
     Dosage: 600 MG, 1X/DAY, (0-39.5 GW)
     Route: 064
     Dates: start: 20120604, end: 20130309
  2. L-THYROXIN [Concomitant]
     Active Substance: LEVOTHYROXINE SODIUM
     Indication: HYPOTHYROIDISM
     Dosage: ^100 ?G, DAILY - UP TO 75 UG^, 0-39.5 GW
     Route: 064
     Dates: start: 20120604, end: 20130309
  3. LAMOTRIGINE. [Suspect]
     Active Substance: LAMOTRIGINE
     Indication: BIPOLAR DISORDER
     Dosage: 150 MG, 2X/DAY, (0-39.5 GW)
     Route: 064
     Dates: start: 20120604, end: 20130309
  4. SERTRALINE HCL [Suspect]
     Active Substance: SERTRALINE HYDROCHLORIDE
     Indication: BIPOLAR DISORDER
     Dosage: 100 MG, 1X/DAY, (0-39.5 GW)
     Route: 064
     Dates: start: 20120604, end: 20130309
  5. QUILONUM [Suspect]
     Active Substance: LITHIUM CARBONATE
     Indication: BIPOLAR DISORDER
     Dosage: 1350 MG/D UP TO 1150 MG/D, (0-39.5 GW)
     Route: 064
     Dates: start: 20120604, end: 20130309
  6. FOLIC ACID. [Concomitant]
     Active Substance: FOLIC ACID
     Indication: PROPHYLAXIS OF NEURAL TUBE DEFECT
     Dosage: 5 MG, DAILY, (0-39.5 GW)
     Route: 064
     Dates: start: 20120604, end: 20130309
  7. METFORMIN [Concomitant]
     Active Substance: METFORMIN HYDROCHLORIDE
     Indication: POLYCYSTIC OVARIES
     Dosage: 1500 MG, DAILY, (0-7.1 GW)
     Route: 064
     Dates: start: 20120604, end: 20120724
  8. CYTOTEC [Concomitant]
     Active Substance: MISOPROSTOL
     Indication: LABOUR INDUCTION
     Dosage: UNK (THIRD TRIMESTER OR 39.4.-39.4 GW)
     Route: 064
     Dates: start: 20130308, end: 20130308
  9. CELESTAN [Concomitant]
     Active Substance: BETAMETHASONE
     Indication: MATERNAL THERAPY TO ENHANCE FOETAL LUNG MATURITY
     Dosage: 4 MG, DAILY (32.2 - 32.3 GW)
     Route: 064
     Dates: start: 20130116, end: 20130117
  10. PARTUSISTEN [Concomitant]
     Active Substance: FENOTEROL
     Indication: PREMATURE LABOUR
     Dosage: UNK ( 31.4.- 31.4 GW)
     Route: 064
     Dates: start: 20130111, end: 20130111
  11. PROTAPHANE HM [Concomitant]
     Indication: GESTATIONAL DIABETES
     Dosage: THIRD TRIMESTER
     Route: 064
  12. AMOXYPEN [Concomitant]
     Active Substance: AMOXICILLIN
     Indication: C-REACTIVE PROTEIN INCREASED
     Dosage: 500 MG, 3X/DAY (32.- 34.4 GW)
     Route: 064
  13. CEFUROXIME. [Concomitant]
     Active Substance: CEFUROXIME
     Indication: INFECTION PROPHYLAXIS
     Dosage: 1.5 G, DAILY (THIRD TRIMESTER OR 39.4.-39.4 GW)
     Route: 064
     Dates: start: 20130308, end: 20130308

REACTIONS (6)
  - Maternal exposure during pregnancy [Unknown]
  - Kidney duplex [Not Recovered/Not Resolved]
  - Agitation neonatal [Recovered/Resolved]
  - Haemangioma congenital [Unknown]
  - Vesicoureteric reflux [Not Recovered/Not Resolved]
  - Pyloric stenosis [Recovered/Resolved]

NARRATIVE: CASE EVENT DATE: 20130309
